FAERS Safety Report 10616783 (Version 2)
Quarter: 2015Q1

REPORT INFORMATION
  Report Type: Spontaneous
  Country: CA (occurrence: CA)
  Receive Date: 20141201
  Receipt Date: 20150225
  Transmission Date: 20150720
  Serious: Yes (Other)
  Sender: FDA-Public Use
  Company Number: CA-DSJP-DSU-2014-129888

PATIENT

DRUGS (6)
  1. OLMETEC [Suspect]
     Active Substance: OLMESARTAN MEDOXOMIL
     Indication: PAIN
     Dosage: 40 MG, QID
     Route: 048
  2. OLMETEC [Suspect]
     Active Substance: OLMESARTAN MEDOXOMIL
     Indication: INFLAMMATION
  3. ITRACONAZOLE. [Concomitant]
     Active Substance: ITRACONAZOLE
     Indication: PAIN
     Dosage: 100 MG, QD
     Route: 048
  4. DANTROLENE [Concomitant]
     Active Substance: DANTROLENE
     Dosage: 25 MG, 3 TIMES PER 1WK
     Route: 048
  5. CYMBALTA [Concomitant]
     Active Substance: DULOXETINE HYDROCHLORIDE
     Indication: DEPRESSION
     Dosage: 60 MG, UNK
     Route: 048
  6. NABILONE [Concomitant]
     Active Substance: NABILONE
     Indication: PAIN
     Dosage: 1 MG, TID
     Route: 048

REACTIONS (3)
  - Overdose [Unknown]
  - Orthostatic hypotension [Unknown]
  - Off label use [Unknown]
